FAERS Safety Report 19410600 (Version 1)
Quarter: 2021Q2

REPORT INFORMATION
  Report Type: Spontaneous
  Country: US (occurrence: US)
  Receive Date: 20210611
  Receipt Date: 20210611
  Transmission Date: 20210717
  Serious: Yes (Hospitalization)
  Sender: FDA-Public Use
  Company Number: None

PATIENT
  Age: 48 Year
  Sex: Female

DRUGS (4)
  1. SILDENAFIL. [Concomitant]
     Active Substance: SILDENAFIL
  2. LISINOPRIL. [Concomitant]
     Active Substance: LISINOPRIL
  3. TORSEMIDE. [Concomitant]
     Active Substance: TORSEMIDE
  4. AMBRISENTAN 5MG TAB [Suspect]
     Active Substance: AMBRISENTAN
     Indication: PULMONARY ARTERIAL HYPERTENSION
     Route: 048
     Dates: start: 20210407

REACTIONS (2)
  - Fluid retention [None]
  - Swelling [None]

NARRATIVE: CASE EVENT DATE: 20210609
